FAERS Safety Report 9339800 (Version 1)
Quarter: 2013Q2

REPORT INFORMATION
  Report Type: Spontaneous
  Country: US (occurrence: US)
  Receive Date: 20130610
  Receipt Date: 20130610
  Transmission Date: 20140414
  Serious: No
  Sender: FDA-Public Use
  Company Number: US-ASTELLAS-2013US004204

PATIENT
  Sex: Male

DRUGS (1)
  1. XTANDI [Suspect]
     Indication: PROSTATE CANCER METASTATIC
     Dosage: 120 MG, UID/QD
     Route: 048
     Dates: start: 201304

REACTIONS (3)
  - Underdose [Unknown]
  - Product size issue [Unknown]
  - Dysphagia [Not Recovered/Not Resolved]
